FAERS Safety Report 15385570 (Version 1)
Quarter: 2018Q3

REPORT INFORMATION
  Report Type: Spontaneous
  Country: US (occurrence: US)
  Receive Date: 20180907
  Receipt Date: 20180907
  Transmission Date: 20181010
  Serious: Yes (Disabling)
  Sender: FDA-Public Use
  Company Number: None

PATIENT
  Age: 69 Year
  Sex: Female
  Weight: 139 kg

DRUGS (19)
  1. LATANOPROST. [Concomitant]
     Active Substance: LATANOPROST
     Dates: start: 20101020
  2. MELATONIN [Concomitant]
     Active Substance: MELATONIN
     Dates: start: 20150416
  3. BELSOMRA [Concomitant]
     Active Substance: SUVOREXANT
     Dates: start: 20180706
  4. METHOTREXATE. [Concomitant]
     Active Substance: METHOTREXATE
     Dates: start: 20140611
  5. LEVOTHYROXINE. [Concomitant]
     Active Substance: LEVOTHYROXINE
  6. LOSARTAN. [Concomitant]
     Active Substance: LOSARTAN
     Dates: start: 20180213
  7. ASPIRIN. [Concomitant]
     Active Substance: ASPIRIN
  8. ATORVASTATIN [Concomitant]
     Active Substance: ATORVASTATIN
     Dates: start: 20180620
  9. CARVEDILOL. [Concomitant]
     Active Substance: CARVEDILOL
     Dates: start: 20150209
  10. ISOSORBIDE MONONITRATE. [Concomitant]
     Active Substance: ISOSORBIDE MONONITRATE
     Dates: start: 20171024
  11. ADALIMUMAB [Concomitant]
     Active Substance: ADALIMUMAB
     Dates: start: 20130226
  12. APIXABAN [Concomitant]
     Active Substance: APIXABAN
     Dates: start: 20180213
  13. BACLOFEN. [Concomitant]
     Active Substance: BACLOFEN
     Dates: start: 20180213
  14. PROMETHAZINE [Concomitant]
     Active Substance: PROMETHAZINE\PROMETHAZINE HYDROCHLORIDE
     Dates: start: 20170831
  15. SYMBICORT [Concomitant]
     Active Substance: BUDESONIDE\FORMOTEROL FUMARATE DIHYDRATE
     Dates: start: 20170829
  16. FOLIC ACID. [Concomitant]
     Active Substance: FOLIC ACID
     Dates: start: 20150416
  17. GABAPENTIN. [Concomitant]
     Active Substance: GABAPENTIN
     Dates: start: 20180321
  18. FLUTICASONE. [Concomitant]
     Active Substance: FLUTICASONE
     Dates: start: 20161026
  19. MYRBETRIQ [Suspect]
     Active Substance: MIRABEGRON
     Indication: URINARY INCONTINENCE
     Route: 048
     Dates: start: 20180420, end: 20180809

REACTIONS (1)
  - Hyperhidrosis [None]

NARRATIVE: CASE EVENT DATE: 20180829
